FAERS Safety Report 9737018 (Version 1)
Quarter: 2013Q4

REPORT INFORMATION
  Report Type: Spontaneous
  Country: US (occurrence: US)
  Receive Date: 20131206
  Receipt Date: 20131206
  Transmission Date: 20140711
  Serious: No
  Sender: FDA-Public Use
  Company Number: US-GILEAD-2009-0023761

PATIENT
  Sex: Female
  Weight: 45.36 kg

DRUGS (11)
  1. LETAIRIS [Suspect]
     Indication: PULMONARY ARTERIAL HYPERTENSION
     Route: 048
  2. LETAIRIS [Suspect]
     Route: 048
     Dates: start: 20080116
  3. VENTAVIS [Concomitant]
     Dates: start: 20080121
  4. REVATIO [Concomitant]
     Dates: start: 20080125
  5. COUMADIN [Concomitant]
  6. LASIX [Concomitant]
  7. SPIRONOLACTONE [Concomitant]
  8. AMIODARONE HCL [Concomitant]
  9. DIGOXIN [Concomitant]
  10. CARDIZEM [Concomitant]
  11. PREVACID [Concomitant]

REACTIONS (1)
  - Nasal congestion [Unknown]
